FAERS Safety Report 15030961 (Version 1)
Quarter: 2018Q2

REPORT INFORMATION
  Report Type: Spontaneous
  Country: ES (occurrence: ES)
  Receive Date: 20180619
  Receipt Date: 20180619
  Transmission Date: 20180711
  Serious: Yes (Other)
  Sender: FDA-Public Use
  Company Number: ES-ELI_LILLY_AND_COMPANY-ES201806003400

PATIENT
  Age: 63 Year
  Sex: Female

DRUGS (3)
  1. XERISTAR [Concomitant]
     Active Substance: DULOXETINE HYDROCHLORIDE
     Indication: PRODUCT USED FOR UNKNOWN INDICATION
     Dosage: UNK
  2. FORSTEO 250UG/ML [Suspect]
     Active Substance: TERIPARATIDE
     Indication: OSTEOPOROSIS
  3. FORSTEO 250UG/ML [Suspect]
     Active Substance: TERIPARATIDE
     Indication: BONE DECALCIFICATION
     Dosage: UNK, UNKNOWN
     Route: 065
     Dates: start: 201801

REACTIONS (5)
  - Vertigo [Unknown]
  - Muscle contracture [Unknown]
  - Arrhythmia [Unknown]
  - Dizziness [Unknown]
  - Product storage error [Unknown]

NARRATIVE: CASE EVENT DATE: 20180607
